FAERS Safety Report 14376825 (Version 2)
Quarter: 2018Q1

REPORT INFORMATION
  Report Type: Spontaneous
  Country: JP (occurrence: JP)
  Receive Date: 20180111
  Receipt Date: 20180212
  Transmission Date: 20180509
  Serious: Yes (Other)
  Sender: FDA-Public Use
  Company Number: JP-JNJFOC-20180106876

PATIENT
  Age: 68 Year
  Sex: Female
  Weight: 43 kg

DRUGS (6)
  1. VELCADE [Suspect]
     Active Substance: BORTEZOMIB
     Indication: PLASMA CELL MYELOMA
     Dosage: TIMES FOUR PER THREE WEEKS (1.9MG-1.7MG)
     Route: 058
     Dates: start: 20170808
  2. PANOBINOSTAT LACTATE [Suspect]
     Active Substance: PANOBINOSTAT LACTATE
     Indication: PLASMA CELL MYELOMA
     Dosage: 10MG-20MG DAY 1,3,5,8,10 AND 12
     Route: 048
     Dates: start: 20170808, end: 20171201
  3. OPSO [Concomitant]
     Active Substance: MORPHINE HYDROCHLORIDE
     Route: 048
     Dates: start: 20171222
  4. DECADRON [Concomitant]
     Active Substance: DEXAMETHASONE
     Indication: PLASMA CELL MYELOMA
     Dosage: DAY 1,2,4,5,8,9,11 AND 12
     Dates: start: 20170808
  5. DARZALEX [Suspect]
     Active Substance: DARATUMUMAB
     Indication: PLASMA CELL MYELOMA
     Route: 041
     Dates: start: 20171222, end: 201801
  6. TAKECAB [Concomitant]
     Active Substance: VONOPRAZAN FUMURATE
     Route: 048

REACTIONS (2)
  - Electrocardiogram QT prolonged [Recovering/Resolving]
  - Haemoglobin decreased [None]

NARRATIVE: CASE EVENT DATE: 20180104
